FAERS Safety Report 12795794 (Version 1)
Quarter: 2016Q3

REPORT INFORMATION
  Report Type: Spontaneous
  Country: JP (occurrence: JP)
  Receive Date: 20160929
  Receipt Date: 20160929
  Transmission Date: 20161109
  Serious: Yes (Other)
  Sender: FDA-Public Use
  Company Number: JP-PFIZER INC-2016450443

PATIENT
  Sex: Female

DRUGS (1)
  1. LIPITOR [Suspect]
     Active Substance: ATORVASTATIN CALCIUM
     Dosage: 10 MG, TAKEN FOR 3 DAYS AND THEN INTERRUPTED FOR 1 DAY
     Route: 048

REACTIONS (2)
  - Diabetes mellitus [Unknown]
  - Intentional product misuse [Unknown]
